FAERS Safety Report 17194370 (Version 6)
Quarter: 2021Q3

REPORT INFORMATION
  Report Type: Spontaneous
  Country: JP (occurrence: JP)
  Receive Date: 20191224
  Receipt Date: 20210703
  Transmission Date: 20211014
  Serious: Yes (Death, Other)
  Sender: FDA-Public Use
  Company Number: JP-AMGEN-JPNSP2019211776

PATIENT
  Age: 70 Year
  Sex: Female
  Weight: 55 kg

DRUGS (5)
  1. NORVASC [Concomitant]
     Active Substance: AMLODIPINE BESYLATE
     Indication: HYPERTENSION
     Dosage: UNK
  2. BLOPRESS [Concomitant]
     Active Substance: CANDESARTAN CILEXETIL
     Indication: HYPERTENSION
     Dosage: UNK
  3. EVENITY [Suspect]
     Active Substance: ROMOSOZUMAB-AQQG
     Indication: OSTEOPOROSIS
     Dosage: 210 MILLIGRAM
     Route: 058
     Dates: start: 20190627
  4. EDIROL [Concomitant]
     Active Substance: ELDECALCITOL
     Indication: OSTEOPOROSIS
     Dosage: 0.75 MICROGRAM, QD
     Dates: start: 20150108
  5. ARTIST [Concomitant]
     Active Substance: CARVEDILOL
     Indication: ARRHYTHMIA
     Dosage: UNK

REACTIONS (4)
  - Aortic dissection [Fatal]
  - Cardiac failure [Fatal]
  - Cardio-respiratory arrest [Fatal]
  - Shock [Fatal]

NARRATIVE: CASE EVENT DATE: 2019
